FAERS Safety Report 8874533 (Version 1)
Quarter: 2012Q4

REPORT INFORMATION
  Report Type: 
  Country: CN (occurrence: CN)
  Receive Date: 20121023
  Receipt Date: 20121023
  Transmission Date: 20130627
  Serious: Yes (Death)
  Sender: FDA-Public Use
  Company Number: PHHY2012CN094647

PATIENT
  Age: 55 Year

DRUGS (2)
  1. PREDNISONE [Suspect]
     Indication: PANCYTOPENIA
     Dosage: 30 mg, per day
  2. CYCLOPHOSPHAMIDE [Suspect]
     Dosage: 0.8 g, QMO

REACTIONS (2)
  - Pneumonia [Fatal]
  - Drug ineffective [Fatal]
